FAERS Safety Report 10177425 (Version 1)
Quarter: 2014Q2

REPORT INFORMATION
  Report Type: Spontaneous
  Country: CN (occurrence: CN)
  Receive Date: 20140516
  Receipt Date: 20140516
  Transmission Date: 20141212
  Serious: Yes (Other)
  Sender: FDA-Public Use
  Company Number: CN-MYLANLABS-2014S1010460

PATIENT
  Age: 16 Year
  Sex: Male

DRUGS (3)
  1. QUETIAPINE [Suspect]
     Indication: BIPOLAR I DISORDER
     Dosage: 50 MG/DAY FOR INITIAL 2D, AND THEN INCREASED BY 50MG EVERY 4D
     Route: 065
  2. QUETIAPINE [Suspect]
     Indication: BIPOLAR I DISORDER
     Dosage: 150 MG/DAY
     Route: 065
  3. QUETIAPINE [Suspect]
     Indication: BIPOLAR I DISORDER
     Dosage: 600 MG/DAY
     Route: 065

REACTIONS (1)
  - Tic [Recovered/Resolved]
